FAERS Safety Report 21700755 (Version 2)
Quarter: 2023Q1

REPORT INFORMATION
  Report Type: Spontaneous
  Country: FR (occurrence: FR)
  Receive Date: 20221208
  Receipt Date: 20230118
  Transmission Date: 20230417
  Serious: Yes (Life-Threatening, Other)
  Sender: FDA-Public Use
  Company Number: None

PATIENT
  Age: 51 Year
  Sex: Male
  Weight: 100 kg

DRUGS (4)
  1. CYTARABINE [Suspect]
     Active Substance: CYTARABINE
     Indication: Acute myeloid leukaemia
     Dosage: 2800 MG, 1X/DAY
     Route: 042
     Dates: start: 20221020, end: 20221020
  2. CERUBIDINE [Suspect]
     Active Substance: DAUNORUBICIN HYDROCHLORIDE
     Indication: Acute myeloid leukaemia
     Dosage: 120 MG, 1X/DAY
     Route: 042
     Dates: start: 20221020, end: 20221022
  3. XOSPATA [Suspect]
     Active Substance: GILTERITINIB
     Indication: Acute myeloid leukaemia
     Dosage: 1680 MG, 1X/DAY
     Route: 048
     Dates: start: 20221020, end: 20221020
  4. XOSPATA [Suspect]
     Active Substance: GILTERITINIB
     Dosage: 1680 MG, 1X/DAY
     Route: 048
     Dates: start: 20221027, end: 20221027

REACTIONS (2)
  - Acute respiratory distress syndrome [Recovering/Resolving]
  - Rash [Recovering/Resolving]

NARRATIVE: CASE EVENT DATE: 20221026
